FAERS Safety Report 4869626-5 (Version None)
Quarter: 2005Q4

REPORT INFORMATION
  Report Type: 
  Country: None (occurrence: None)
  Receive Date: 20051227
  Receipt Date: 20051215
  Transmission Date: 20060501
  Serious: Yes (Hospitalization)
  Sender: FDA-Public Use
  Company Number: US016258

PATIENT
  Age: 52 Year
  Sex: Male

DRUGS (8)
  1. MODAFINIL [Suspect]
     Indication: SLEEP APNOEA SYNDROME
     Dates: start: 20050727, end: 20050101
  2. MODAFINIL [Suspect]
     Indication: SOMNOLENCE
     Dates: start: 20050727, end: 20050101
  3. MODAFINIL [Suspect]
     Indication: SLEEP APNOEA SYNDROME
     Dosage: 300 MG QD ORAL
     Route: 048
     Dates: start: 20050101, end: 20050101
  4. MODAFINIL [Suspect]
     Indication: SOMNOLENCE
     Dosage: 300 MG QD ORAL
     Route: 048
     Dates: start: 20050101, end: 20050101
  5. MODAFINIL [Suspect]
     Indication: SLEEP APNOEA SYNDROME
     Dates: start: 20050101
  6. MODAFINIL [Suspect]
     Indication: SOMNOLENCE
     Dates: start: 20050101
  7. DEROXAT [Concomitant]
  8. ATARAX [Concomitant]

REACTIONS (5)
  - AGITATION [None]
  - DELIRIUM [None]
  - DYSKINESIA [None]
  - IRRITABILITY [None]
  - OBSESSIVE-COMPULSIVE DISORDER [None]
